FAERS Safety Report 14374118 (Version 3)
Quarter: 2018Q1

REPORT INFORMATION
  Report Type: Report from Study
  Country: CA (occurrence: CA)
  Receive Date: 20180111
  Receipt Date: 20180125
  Transmission Date: 20180509
  Serious: Yes (Death, Life-Threatening, Hospitalization, Disabling, Other)
  Sender: FDA-Public Use
  Company Number: CA-ASTRAZENECA-2016SE94245

PATIENT
  Age: 25490 Day
  Sex: Female

DRUGS (9)
  1. MEDI4736 [Suspect]
     Active Substance: DURVALUMAB
     Indication: BLADDER TRANSITIONAL CELL CARCINOMA
     Route: 042
     Dates: start: 20160623, end: 20160623
  2. MEDI4736 [Suspect]
     Active Substance: DURVALUMAB
     Indication: BLADDER TRANSITIONAL CELL CARCINOMA
     Route: 042
     Dates: start: 20160429, end: 20160429
  3. MEDI4736 [Suspect]
     Active Substance: DURVALUMAB
     Indication: BLADDER TRANSITIONAL CELL CARCINOMA
     Route: 042
     Dates: start: 20160527, end: 20160527
  4. CIPROFLOXACIN. [Concomitant]
     Active Substance: CIPROFLOXACIN
     Indication: URINARY TRACT INFECTION
     Route: 048
     Dates: start: 20160720
  5. MEDI4736 [Suspect]
     Active Substance: DURVALUMAB
     Indication: BLADDER TRANSITIONAL CELL CARCINOMA
     Route: 042
     Dates: start: 20160721, end: 20160721
  6. PLENDIL [Concomitant]
     Active Substance: FELODIPINE
     Indication: HYPERTENSION
     Route: 048
     Dates: start: 20160616
  7. MEDI4736 [Suspect]
     Active Substance: DURVALUMAB
     Indication: BLADDER TRANSITIONAL CELL CARCINOMA
     Route: 042
     Dates: end: 20160818
  8. TYLENOL [Concomitant]
     Active Substance: ACETAMINOPHEN
     Indication: CANCER PAIN
     Dosage: 650.0MG AS REQUIRED
     Route: 048
     Dates: start: 201601
  9. TYLENOL [Concomitant]
     Active Substance: ACETAMINOPHEN
     Indication: CANCER PAIN
     Dosage: 500.0MG AS REQUIRED
     Route: 048
     Dates: start: 201601

REACTIONS (1)
  - Cerebrovascular accident [Not Recovered/Not Resolved]

NARRATIVE: CASE EVENT DATE: 20160818
